FAERS Safety Report 24206356 (Version 1)
Quarter: 2024Q3

REPORT INFORMATION
  Report Type: Spontaneous
  Country: JP (occurrence: JP)
  Receive Date: 20240813
  Receipt Date: 20240813
  Transmission Date: 20241017
  Serious: Yes (Hospitalization, Other)
  Sender: TAKEDA
  Company Number: JP-TEVA-VS-3230761

PATIENT

DRUGS (1)
  1. LANSOPRAZOLE [Suspect]
     Active Substance: LANSOPRAZOLE
     Indication: Product used for unknown indication
     Dosage: UNK, QD (DOSAGE IS UNKNOWN)
     Route: 048

REACTIONS (2)
  - Hospitalisation [Unknown]
  - Intestinal ulcer [Unknown]
